FAERS Safety Report 15788518 (Version 1)
Quarter: 2019Q1

REPORT INFORMATION
  Report Type: Spontaneous
  Country: IT (occurrence: IT)
  Receive Date: 20190104
  Receipt Date: 20190104
  Transmission Date: 20190417
  Serious: Yes (Other)
  Sender: FDA-Public Use
  Company Number: IT-ACCORD-100484

PATIENT
  Age: 66 Year
  Sex: Female
  Weight: 68 kg

DRUGS (3)
  1. FLUOROURACIL. [Suspect]
     Active Substance: FLUOROURACIL
     Indication: PHARYNGEAL NEOPLASM
     Dates: start: 20180420
  2. CISPLATIN ACCORD [Suspect]
     Active Substance: CISPLATIN
     Indication: PHARYNGEAL NEOPLASM
     Dates: start: 20180420
  3. CETUXIMAB. [Concomitant]
     Active Substance: CETUXIMAB
     Indication: PHARYNGEAL NEOPLASM
     Dates: start: 20180420

REACTIONS (4)
  - Nausea [Recovering/Resolving]
  - Gastrointestinal toxicity [Recovering/Resolving]
  - Vomiting [Recovering/Resolving]
  - Diarrhoea [Recovering/Resolving]

NARRATIVE: CASE EVENT DATE: 20180420
